FAERS Safety Report 9414967 (Version 2)
Quarter: 2013Q3

REPORT INFORMATION
  Report Type: Spontaneous
  Country: US (occurrence: None)
  Receive Date: 20130718
  Receipt Date: 20130813
  Transmission Date: 20140515
  Serious: Yes (Hospitalization)
  Sender: FDA-Public Use
  Company Number: JPI-P-033571

PATIENT
  Age: 36 Year
  Sex: Male

DRUGS (2)
  1. XYREM [Suspect]
     Indication: CATAPLEXY
     Dosage: 4.5 GM (2.25 GM, 2 IN 1 D) ORAL
     Route: 048
     Dates: start: 20060731, end: 2006
  2. UNSPECIFIED MEDICATION [Suspect]

REACTIONS (2)
  - Depression [None]
  - Mental disorder [None]
